FAERS Safety Report 13354362 (Version 1)
Quarter: 2017Q1

REPORT INFORMATION
  Report Type: Spontaneous
  Country: US (occurrence: US)
  Receive Date: 20170320
  Receipt Date: 20170320
  Transmission Date: 20170429
  Serious: Yes (Hospitalization)
  Sender: FDA-Public Use
  Company Number: None

PATIENT
  Age: 66 Year
  Sex: Female

DRUGS (2)
  1. FISH OIL [Concomitant]
     Active Substance: FISH OIL
  2. SIROLIMUS 0.5MG [Suspect]
     Active Substance: SIROLIMUS
     Indication: ACUTE MYELOMONOCYTIC LEUKAEMIA
     Dosage: 0.5MG ONCE QD PO
     Route: 048
     Dates: start: 20151023

REACTIONS (1)
  - Pneumonia [None]

NARRATIVE: CASE EVENT DATE: 2017
